FAERS Safety Report 5803735-9 (Version None)
Quarter: 2008Q3

REPORT INFORMATION
  Report Type: 
  Country: None (occurrence: None)
  Receive Date: 20080707
  Receipt Date: 20080630
  Transmission Date: 20090109
  Serious: Yes (Other)
  Sender: FDA-Public Use
  Company Number: 200806AGG00813

PATIENT
  Age: 50 Year
  Sex: Male

DRUGS (4)
  1. TIROFIBAN (TIROFIBAN) [Suspect]
     Indication: CARDIOPULMONARY BYPASS
     Dosage: (INTRAVENOUS)
     Route: 042
  2. HEPARIN [Concomitant]
  3. DANAPAROID [Concomitant]
  4. PROTAMINE SULFATE [Concomitant]

REACTIONS (2)
  - DRUG EFFECT PROLONGED [None]
  - HAEMORRHAGE [None]
